FAERS Safety Report 5765000-8 (Version None)
Quarter: 2008Q2

REPORT INFORMATION
  Report Type: 
  Country: None (occurrence: None)
  Receive Date: 20080611
  Receipt Date: 20080528
  Transmission Date: 20081010
  Serious: Yes (Other)
  Sender: FDA-Public Use
  Company Number: US-ELI_LILLY_AND_COMPANY-US200804004259

PATIENT
  Sex: Male
  Weight: 86.168 kg

DRUGS (2)
  1. BYETTA [Suspect]
     Indication: TYPE 2 DIABETES MELLITUS
     Dosage: 5 UG, 2/D
     Route: 058
     Dates: start: 20080312, end: 20080410
  2. CARVEDILOL [Concomitant]
     Indication: BLOOD PRESSURE
     Dosage: 3.125 MG, 2/D
     Route: 048
     Dates: start: 20080312

REACTIONS (2)
  - PANCREATITIS [None]
  - WEIGHT DECREASED [None]
